FAERS Safety Report 13059004 (Version 2)
Quarter: 2017Q1

REPORT INFORMATION
  Report Type: Report from Study
  Country: US (occurrence: US)
  Receive Date: 20161223
  Receipt Date: 20170126
  Transmission Date: 20170428
  Serious: Yes (Hospitalization, Other)
  Sender: FDA-Public Use
  Company Number: US-GILEAD-2016-0246189

PATIENT
  Age: 81 Year
  Sex: Female
  Weight: 56.8 kg

DRUGS (12)
  1. HYDROCHLOROTHIAZIDE. [Concomitant]
     Active Substance: HYDROCHLOROTHIAZIDE
  2. LASIX [Concomitant]
     Active Substance: FUROSEMIDE
  3. AMBRISENTAN [Suspect]
     Active Substance: AMBRISENTAN
     Indication: SCLERODERMA
  4. PRADAXA [Concomitant]
     Active Substance: DABIGATRAN ETEXILATE MESYLATE
  5. AMBRISENTAN [Suspect]
     Active Substance: AMBRISENTAN
     Indication: PULMONARY ARTERIAL HYPERTENSION
     Dosage: 10 MG, QD
     Route: 048
     Dates: start: 20111114
  6. CARDIZEM [Concomitant]
     Active Substance: DILTIAZEM HYDROCHLORIDE
  7. DILTIAZEM. [Concomitant]
     Active Substance: DILTIAZEM
  8. IMDUR [Concomitant]
     Active Substance: ISOSORBIDE MONONITRATE
  9. PREDNISONE. [Concomitant]
     Active Substance: PREDNISONE
  10. WARFARIN [Concomitant]
     Active Substance: WARFARIN
  11. ISOSORBIDE. [Concomitant]
     Active Substance: ISOSORBIDE
  12. LISINOPRIL. [Concomitant]
     Active Substance: LISINOPRIL

REACTIONS (3)
  - Altered state of consciousness [Recovered/Resolved]
  - Abdominal pain [Not Recovered/Not Resolved]
  - Bacteraemia [Recovered/Resolved]

NARRATIVE: CASE EVENT DATE: 20161112
